FAERS Safety Report 6130095-9 (Version None)
Quarter: 2009Q1

REPORT INFORMATION
  Report Type: 
  Country: None (occurrence: None)
  Receive Date: 20090324
  Receipt Date: 20090318
  Transmission Date: 20090719
  Serious: Yes (Hospitalization, Other)
  Sender: FDA-Public Use
  Company Number: FR-BRISTOL-MYERS SQUIBB COMPANY-14548754

PATIENT
  Age: 64 Year
  Sex: Male

DRUGS (9)
  1. ELISOR TABS 20 MG [Suspect]
     Indication: HYPERCHOLESTEROLAEMIA
     Route: 048
  2. PREVISCAN [Interacting]
     Indication: ATRIAL FIBRILLATION
     Route: 048
  3. ZYLORIC [Interacting]
     Indication: HYPERURICAEMIA
     Route: 048
  4. CORTANCYL [Interacting]
     Indication: PROPHYLAXIS AGAINST TRANSPLANT REJECTION
     Route: 048
  5. PROGRAF [Concomitant]
     Indication: PROPHYLAXIS AGAINST TRANSPLANT REJECTION
     Route: 048
  6. CELLCEPT [Concomitant]
     Indication: PROPHYLAXIS AGAINST TRANSPLANT REJECTION
     Route: 048
  7. XATRAL LP [Concomitant]
     Indication: PROSTATOMEGALY
     Route: 048
  8. INIPOMP [Concomitant]
     Route: 048
  9. EUPRESSYL [Concomitant]
     Indication: HYPERTENSION
     Route: 048

REACTIONS (2)
  - DRUG INTERACTION [None]
  - RECTAL HAEMORRHAGE [None]
